FAERS Safety Report 5585548-9 (Version None)
Quarter: 2008Q1

REPORT INFORMATION
  Report Type: 
  Country: None (occurrence: None)
  Receive Date: 20080109
  Receipt Date: 20080103
  Transmission Date: 20080703
  Serious: Yes (Other)
  Sender: FDA-Public Use
  Company Number: B0360759A

PATIENT
  Sex: Male

DRUGS (4)
  1. PAROXETINE HYDROCHLORIDE [Suspect]
     Indication: STRESS
     Route: 065
     Dates: start: 20010908
  2. VIAGRA [Concomitant]
  3. LUSTRAL [Concomitant]
     Dates: start: 20040117
  4. EFFEXOR [Concomitant]
     Dates: start: 20040122

REACTIONS (16)
  - AGITATION [None]
  - BRUXISM [None]
  - CONFUSIONAL STATE [None]
  - DISTURBANCE IN ATTENTION [None]
  - DIZZINESS [None]
  - DRUG WITHDRAWAL SYNDROME [None]
  - ERECTILE DYSFUNCTION [None]
  - HYPERHIDROSIS [None]
  - MEMORY IMPAIRMENT [None]
  - NIGHTMARE [None]
  - PARAESTHESIA [None]
  - POOR QUALITY SLEEP [None]
  - SLEEP DISORDER [None]
  - SUICIDAL IDEATION [None]
  - TINNITUS [None]
  - VERTIGO [None]
